FAERS Safety Report 16652664 (Version 1)
Quarter: 2019Q3

REPORT INFORMATION
  Report Type: Spontaneous
  Country: US (occurrence: US)
  Receive Date: 20190731
  Receipt Date: 20190731
  Transmission Date: 20191004
  Serious: Yes (Death)
  Sender: FDA-Public Use
  Company Number: None

PATIENT
  Sex: Male

DRUGS (6)
  1. ASPIRIN LOW, BENADRYL [Concomitant]
  2. VITMAIN D [Concomitant]
  3. METHOTREXATE. [Suspect]
     Active Substance: METHOTREXATE
     Indication: PSORIASIS
     Dosage: ?          OTHER FREQUENCY:Q 7 DAYS;?
     Route: 048
     Dates: start: 20171018
  4. DULOXETINE, PREDNISONE [Concomitant]
  5. COSENTYX [Suspect]
     Active Substance: SECUKINUMAB
     Indication: PSORIASIS
     Dosage: ?          OTHER FREQUENCY:Q 4 WEEKS;?
     Route: 058
     Dates: start: 20180302
  6. CALCIFEROL, CLOBETASOL [Concomitant]

REACTIONS (1)
  - Death [None]
